FAERS Safety Report 20771132 (Version 1)
Quarter: 2022Q2

REPORT INFORMATION
  Report Type: Spontaneous
  Country: US (occurrence: US)
  Receive Date: 20220429
  Receipt Date: 20220429
  Transmission Date: 20220720
  Serious: No
  Sender: FDA-Public Use
  Company Number: US-TEVA-2022-US-2024717

PATIENT
  Age: 68 Year
  Sex: Female
  Weight: 77.11 kg

DRUGS (4)
  1. AJOVY [Suspect]
     Active Substance: FREMANEZUMAB-VFRM
     Indication: Eosinophil count
     Dates: start: 202112
  2. AJOVY [Suspect]
     Active Substance: FREMANEZUMAB-VFRM
  3. FASENRA [Concomitant]
     Active Substance: BENRALIZUMAB
     Indication: Migraine
  4. DIOVAN [Concomitant]
     Active Substance: VALSARTAN
     Indication: Hypertension

REACTIONS (5)
  - Injection site urticaria [Recovering/Resolving]
  - Injection site erythema [Recovering/Resolving]
  - Pyrexia [Recovering/Resolving]
  - Injection site mass [Recovering/Resolving]
  - Injection site discolouration [Recovering/Resolving]

NARRATIVE: CASE EVENT DATE: 20220301
